FAERS Safety Report 19983347 (Version 1)
Quarter: 2021Q4

REPORT INFORMATION
  Report Type: Spontaneous
  Country: US (occurrence: US)
  Receive Date: 20211020
  Receipt Date: 20211020
  Transmission Date: 20220303
  Serious: Yes (Hospitalization)
  Sender: FDA-Public Use
  Company Number: None

PATIENT
  Age: 70 Year
  Sex: Male

DRUGS (13)
  1. REPATHA [Suspect]
     Active Substance: EVOLOCUMAB
     Indication: Type V hyperlipidaemia
     Route: 058
     Dates: start: 20200829
  2. ASPIRIN [Concomitant]
     Active Substance: ASPIRIN
  3. BYSTOLIC [Concomitant]
     Active Substance: NEBIVOLOL HYDROCHLORIDE
  4. CALCIUM/MAGN [Concomitant]
  5. VITAMIN D3 [Concomitant]
     Active Substance: CHOLECALCIFEROL
  6. FISH OIL [Concomitant]
     Active Substance: FISH OIL
  7. GLIMEPIRIDE [Concomitant]
     Active Substance: GLIMEPIRIDE
  8. LISINOPRIL [Concomitant]
     Active Substance: LISINOPRIL
  9. POT CHLORIDE ER [Concomitant]
  10. PROCARDIA [Concomitant]
     Active Substance: NIFEDIPINE
  11. VICTOZA [Concomitant]
     Active Substance: LIRAGLUTIDE
  12. VIT E D-ALPH [Concomitant]
  13. VITAMIN C [Concomitant]
     Active Substance: ASCORBIC ACID

REACTIONS (1)
  - Spinal operation [None]

NARRATIVE: CASE EVENT DATE: 20211013
